FAERS Safety Report 16361315 (Version 1)
Quarter: 2019Q3

REPORT INFORMATION
  Report Type: Spontaneous
  Country: US (occurrence: US)
  Receive Date: 20190524
  Receipt Date: 20190524
  Transmission Date: 20191004
  Serious: No
  Sender: FDA-Public Use
  Company Number: None

PATIENT
  Age: 71 Year
  Sex: Female
  Weight: 62.1 kg

DRUGS (1)
  1. LIDOCAINE. [Suspect]
     Active Substance: LIDOCAINE
     Indication: POSTOPERATIVE ANALGESIA
     Route: 041

REACTIONS (3)
  - Diplopia [None]
  - Dysgeusia [None]
  - Infusion related reaction [None]

NARRATIVE: CASE EVENT DATE: 20180227
